FAERS Safety Report 26099581 (Version 1)
Quarter: 2025Q4

REPORT INFORMATION
  Report Type: Spontaneous
  Country: JP (occurrence: JP)
  Receive Date: 20251128
  Receipt Date: 20251128
  Transmission Date: 20260117
  Serious: Yes (Life-Threatening, Hospitalization, Other)
  Sender: STRIDES
  Company Number: JP-STRIDES ARCOLAB LIMITED-2025SP014662

PATIENT
  Age: 21 Year
  Sex: Male

DRUGS (1)
  1. ATOMOXETINE [Suspect]
     Active Substance: ATOMOXETINE
     Indication: Attention deficit hyperactivity disorder
     Dosage: UNK
     Route: 065

REACTIONS (8)
  - Phaeochromocytoma crisis [Recovering/Resolving]
  - Paraganglion neoplasm [Recovering/Resolving]
  - Condition aggravated [Recovering/Resolving]
  - Respiratory failure [Recovering/Resolving]
  - Circulatory collapse [Recovering/Resolving]
  - Cardiogenic shock [Unknown]
  - Contraindicated product administered [Unknown]
  - Nausea [Unknown]
